FAERS Safety Report 5499785-5 (Version None)
Quarter: 2007Q4

REPORT INFORMATION
  Report Type: 
  Country: None (occurrence: None)
  Receive Date: 20071026
  Receipt Date: 20071016
  Transmission Date: 20080405
  Serious: Yes (Hospitalization, Other)
  Sender: FDA-Public Use
  Company Number: US-PFIZER INC-2007068408

PATIENT
  Sex: Female
  Weight: 99.8 kg

DRUGS (3)
  1. CHANTIX [Suspect]
     Indication: SMOKING CESSATION THERAPY
     Dates: start: 20070604, end: 20070820
  2. PROLOL [Concomitant]
  3. LEVOTHYROXINE SODIUM [Concomitant]

REACTIONS (8)
  - AMNESIA [None]
  - ANEURYSM RUPTURED [None]
  - DISTURBANCE IN ATTENTION [None]
  - HEADACHE [None]
  - INTRACRANIAL HYPOTENSION [None]
  - LOSS OF CONSCIOUSNESS [None]
  - NAUSEA [None]
  - TOBACCO WITHDRAWAL SYMPTOMS [None]
